FAERS Safety Report 6209949-0 (Version None)
Quarter: 2009Q2

REPORT INFORMATION
  Report Type: 
  Country: None (occurrence: None)
  Receive Date: 20090601
  Receipt Date: 20090518
  Transmission Date: 20091009
  Serious: Yes (Hospitalization)
  Sender: FDA-Public Use
  Company Number: AU-PFIZER INC-2009214144

PATIENT
  Age: 61 Year

DRUGS (2)
  1. CHAMPIX [Suspect]
  2. PARACETAMOL [Concomitant]

REACTIONS (6)
  - ANXIETY [None]
  - BACK PAIN [None]
  - NAUSEA [None]
  - NECK PAIN [None]
  - PAIN [None]
  - PALPITATIONS [None]
